FAERS Safety Report 14561807 (Version 1)
Quarter: 2018Q1

REPORT INFORMATION
  Report Type: Spontaneous
  Country: ES (occurrence: ES)
  Receive Date: 20180222
  Receipt Date: 20180222
  Transmission Date: 20180509
  Serious: Yes (Death, Other)
  Sender: FDA-Public Use
  Company Number: ES-CELGENEUS-ESP-20180202962

PATIENT
  Age: 64 Year
  Sex: Female

DRUGS (8)
  1. NEXAVAR [Suspect]
     Active Substance: SORAFENIB
     Dosage: 400 MILLIGRAM
     Route: 048
     Dates: start: 201005
  2. NEXAVAR [Suspect]
     Active Substance: SORAFENIB
     Indication: OFF LABEL USE
     Dosage: 400 MILLIGRAM
     Route: 048
     Dates: start: 201302, end: 2013
  3. REVLIMID [Suspect]
     Active Substance: LENALIDOMIDE
     Indication: OFF LABEL USE
  4. PAZOPANIB [Suspect]
     Active Substance: PAZOPANIB
     Route: 065
     Dates: start: 201302
  5. NEXAVAR [Suspect]
     Active Substance: SORAFENIB
     Indication: FOLLICULAR THYROID CANCER
     Dosage: 800 MILLIGRAM
     Route: 048
     Dates: start: 2009, end: 2011
  6. VANDETANIB. [Suspect]
     Active Substance: VANDETANIB
     Indication: PRODUCT USED FOR UNKNOWN INDICATION
     Route: 065
     Dates: start: 201405, end: 201408
  7. PAZOPANIB [Suspect]
     Active Substance: PAZOPANIB
     Indication: PRODUCT USED FOR UNKNOWN INDICATION
     Route: 065
     Dates: start: 201110
  8. REVLIMID [Suspect]
     Active Substance: LENALIDOMIDE
     Indication: FOLLICULAR THYROID CANCER
     Route: 048
     Dates: start: 201310, end: 201404

REACTIONS (7)
  - Neoplasm progression [Unknown]
  - Musculoskeletal pain [Unknown]
  - Asthenia [Unknown]
  - Neoplasm progression [Fatal]
  - General physical health deterioration [Unknown]
  - Respiratory failure [Fatal]
  - Lymphadenopathy mediastinal [Unknown]

NARRATIVE: CASE EVENT DATE: 201310
